FAERS Safety Report 9320311 (Version 2)
Quarter: 2013Q3

REPORT INFORMATION
  Report Type: Spontaneous
  Country: FR (occurrence: FR)
  Receive Date: 20130530
  Receipt Date: 20130703
  Transmission Date: 20140515
  Serious: Yes (Hospitalization)
  Sender: FDA-Public Use
  Company Number: FR-B.I. PHARMACEUTICALS,INC./RIDGEFIELD-2013-FF-01488FF

PATIENT
  Age: 77 Year
  Sex: Male
  Weight: 90 kg

DRUGS (8)
  1. PRADAXA [Suspect]
     Indication: ATRIAL FIBRILLATION
     Dosage: 220 MG
     Route: 048
     Dates: start: 20130202, end: 20130209
  2. ALTEIS [Concomitant]
  3. ESIDREX [Concomitant]
  4. SOTALEX [Concomitant]
  5. TAHOR [Concomitant]
  6. HALDOL [Concomitant]
  7. INEXIUM [Concomitant]
  8. INSULIN [Concomitant]

REACTIONS (2)
  - Diverticulum intestinal haemorrhagic [Recovered/Resolved]
  - Adenocarcinoma of colon [Recovered/Resolved]
